FAERS Safety Report 7252165-4 (Version None)
Quarter: 2011Q1

REPORT INFORMATION
  Report Type: 
  Country: None (occurrence: None)
  Receive Date: 20110129
  Receipt Date: 20100329
  Transmission Date: 20110831
  Serious: No
  Sender: FDA-Public Use
  Company Number: US-ABBOTT-10P-163-0636326-00

PATIENT
  Sex: Male
  Weight: 108.96 kg

DRUGS (5)
  1. HUMIRA [Suspect]
     Indication: RHEUMATOID ARTHRITIS
     Route: 058
  2. BENICAR [Concomitant]
     Indication: HYPERTENSION
  3. SINGULAIR [Concomitant]
     Indication: HYPERSENSITIVITY
  4. BYSTOLIC [Concomitant]
     Indication: HYPERTENSION
  5. UNKNOWN ALLERGY SHOTS [Concomitant]
     Indication: HYPERSENSITIVITY

REACTIONS (2)
  - INJECTION SITE PARAESTHESIA [None]
  - INJECTION SITE PAIN [None]
